FAERS Safety Report 5257142-0 (Version None)
Quarter: 2007Q1

REPORT INFORMATION
  Report Type: 
  Country: None (occurrence: None)
  Receive Date: 20070307
  Receipt Date: 20070223
  Transmission Date: 20070707
  Serious: Yes (Other)
  Sender: FDA-Public Use
  Company Number: VE-ROCHE-484251

PATIENT
  Age: 33 Year
  Sex: Female

DRUGS (1)
  1. XENICAL [Suspect]
     Indication: OBESITY
     Route: 048
     Dates: start: 20061110, end: 20061129

REACTIONS (2)
  - ABDOMINAL PAIN [None]
  - COLITIS [None]
